FAERS Safety Report 12899551 (Version 3)
Quarter: 2017Q1

REPORT INFORMATION
  Report Type: Spontaneous
  Country: GB (occurrence: GB)
  Receive Date: 20161101
  Receipt Date: 20170222
  Transmission Date: 20170428
  Serious: Yes (Death, Life-Threatening, Disabling)
  Sender: FDA-Public Use
  Company Number: GB-TEVA-707176ACC

PATIENT
  Age: 14 Year
  Sex: Male
  Weight: 53.5 kg

DRUGS (11)
  1. FOLINIC ACID [Concomitant]
     Active Substance: LEUCOVORIN
  2. THIOTEPA. [Concomitant]
     Active Substance: THIOTEPA
     Indication: STEM CELL TRANSPLANT
  3. ANTI-THYMOCYTE GLOBULIN (RABBIT) NOS [Concomitant]
     Active Substance: LAPINE T-LYMPHOCYTE IMMUNE GLOBULIN
     Indication: STEM CELL TRANSPLANT
  4. ACICLOVIR [Concomitant]
     Active Substance: ACYCLOVIR
  5. ITRACONAZOLE. [Concomitant]
     Active Substance: ITRACONAZOLE
  6. MYCOPHENOLATE MOFETIL. [Concomitant]
     Active Substance: MYCOPHENOLATE MOFETIL
  7. FLUDARABINE [Suspect]
     Active Substance: FLUDARABINE PHOSPHATE
     Indication: BONE MARROW TRANSPLANT
     Route: 042
     Dates: start: 20160727, end: 20160730
  8. PENICILLIN [Concomitant]
     Active Substance: PENICILLIN
  9. SEPTRIN [Concomitant]
     Active Substance: SULFAMETHOXAZOLE\TRIMETHOPRIM
     Dosage: HIGH-DOSE
  10. NOZINAN [Concomitant]
     Active Substance: LEVOMEPROMAZINE
  11. DAPSONE. [Concomitant]
     Active Substance: DAPSONE

REACTIONS (5)
  - Brain injury [Fatal]
  - Respiratory failure [Not Recovered/Not Resolved]
  - Locked-in syndrome [Not Recovered/Not Resolved]
  - Septic shock [Not Recovered/Not Resolved]
  - Spinal cord injury [Not Recovered/Not Resolved]

NARRATIVE: CASE EVENT DATE: 20160829
